FAERS Safety Report 9807232 (Version 1)
Quarter: 2014Q1

REPORT INFORMATION
  Report Type: Spontaneous
  Country: FR (occurrence: FR)
  Receive Date: 20140110
  Receipt Date: 20140110
  Transmission Date: 20141002
  Serious: Yes (Hospitalization)
  Sender: FDA-Public Use
  Company Number: 2014SP000063

PATIENT
  Age: 85 Year
  Sex: Male

DRUGS (18)
  1. VANCOMYCIN [Suspect]
     Indication: PRODUCT USED FOR UNKNOWN INDICATION
     Dates: start: 201308, end: 20130831
  2. AMOXICILLIN TRIHYDRATE [Suspect]
     Indication: DEVICE RELATED INFECTION
     Dates: start: 201308, end: 20130831
  3. AMOXICILLIN TRIHYDRATE [Suspect]
     Indication: DEVICE RELATED INFECTION
     Route: 048
     Dates: start: 20130925
  4. ROCEPHINE [Suspect]
     Indication: PRODUCT USED FOR UNKNOWN INDICATION
     Dates: start: 201308
  5. CIPROFLOXACIN [Suspect]
     Indication: PRODUCT USED FOR UNKNOWN INDICATION
     Route: 042
     Dates: start: 20130826, end: 20131107
  6. CIPROFLOXACIN [Suspect]
     Indication: PRODUCT USED FOR UNKNOWN INDICATION
  7. TAVANIC [Suspect]
     Indication: PRODUCT USED FOR UNKNOWN INDICATION
     Dates: start: 201308, end: 20130831
  8. RIFAMPICIN [Suspect]
     Indication: PRODUCT USED FOR UNKNOWN INDICATION
     Dates: start: 201308, end: 20130906
  9. METFORMIN HYDROCHLORIDE [Concomitant]
  10. DIAMICRON [Concomitant]
  11. PRAVASTATINE [Concomitant]
  12. IRBESARTAN [Concomitant]
  13. BISOPROLOL [Concomitant]
  14. PARIET [Concomitant]
  15. KARDEGIC [Concomitant]
  16. IBUPROFEN /00109205/ [Concomitant]
  17. PARACETAMOL [Concomitant]
  18. CORDARONE [Concomitant]

REACTIONS (5)
  - Renal failure acute [Unknown]
  - Acute respiratory distress syndrome [Unknown]
  - Altered state of consciousness [Unknown]
  - Colitis [Unknown]
  - Gastrointestinal haemorrhage [Unknown]
